FAERS Safety Report 5044467-7 (Version None)
Quarter: 2006Q3

REPORT INFORMATION
  Report Type: 
  Country: None (occurrence: None)
  Receive Date: 20060706
  Receipt Date: 20060705
  Transmission Date: 20061208
  Serious: Yes (Other)
  Sender: FDA-Public Use
  Company Number: US-GLAXOSMITHKLINE-A0611151A

PATIENT
  Age: 75 Year
  Sex: Male

DRUGS (5)
  1. LAMICTAL [Suspect]
     Indication: NERVOUS SYSTEM DISORDER
     Dosage: 200MG PER DAY
     Route: 048
     Dates: start: 20060608, end: 20060627
  2. FLOMAX [Concomitant]
  3. VESICARE [Concomitant]
     Dates: start: 20060101
  4. AVODART [Concomitant]
     Dates: start: 20050101
  5. VITAMINS [Concomitant]

REACTIONS (3)
  - CONTUSION [None]
  - DIZZINESS [None]
  - SYNCOPE [None]
